FAERS Safety Report 5015420-4 (Version None)
Quarter: 2006Q2

REPORT INFORMATION
  Report Type: 
  Country: None (occurrence: None)
  Receive Date: 20060530
  Receipt Date: 20060530
  Transmission Date: 20061013
  Serious: No
  Sender: FDA-Public Use
  Company Number: None

PATIENT
  Age: 56 Year
  Sex: Male

DRUGS (3)
  1. CEFAZOLIN [Suspect]
     Indication: HIP ARTHROPLASTY
     Dosage: 1.0 GRAM IV
     Route: 042
     Dates: start: 20050404
  2. CEFAZOLIN [Suspect]
     Indication: PREOPERATIVE CARE
     Dosage: 1.0 GRAM IV
     Route: 042
     Dates: start: 20050404
  3. CEFAZOLIN [Suspect]
     Indication: PROPHYLAXIS
     Dosage: 1.0 GRAM IV
     Route: 042
     Dates: start: 20050404

REACTIONS (5)
  - BRONCHOSPASM [None]
  - DRUG HYPERSENSITIVITY [None]
  - HYPERTENSION [None]
  - LOSS OF CONSCIOUSNESS [None]
  - OBSTRUCTIVE AIRWAYS DISORDER [None]
